FAERS Safety Report 9219397 (Version 1)
Quarter: 2013Q2

REPORT INFORMATION
  Report Type: Spontaneous
  Country: US (occurrence: US)
  Receive Date: 20130409
  Receipt Date: 20130409
  Transmission Date: 20140414
  Serious: No
  Sender: FDA-Public Use
  Company Number: US-PFIZER INC-2013108138

PATIENT
  Age: 75 Year
  Sex: Female
  Weight: 65.31 kg

DRUGS (12)
  1. IRON [Concomitant]
     Dosage: UNK
  2. LASIX [Concomitant]
     Dosage: UNK
  3. METOLAZONE [Concomitant]
     Dosage: UNK
  4. FLAGYL [Suspect]
     Indication: DIVERTICULITIS
     Dosage: 500 MG, 3X/DAY
     Route: 048
     Dates: start: 20130331
  5. CIPROFLOXACIN [Concomitant]
     Dosage: UNK
  6. SINGULAIR [Concomitant]
     Dosage: UNK
  7. LEVOTHYROXINE [Concomitant]
     Dosage: UNK
  8. ASPIRIN [Concomitant]
     Dosage: UNK
  9. COUMADIN [Concomitant]
     Dosage: UNK
  10. CRESTOR [Concomitant]
     Dosage: UNK
  11. NEXIUM [Concomitant]
     Dosage: UNK
  12. CALCIUM [Concomitant]
     Dosage: UNK

REACTIONS (1)
  - Nausea [Not Recovered/Not Resolved]
